FAERS Safety Report 9778276 (Version 2)
Quarter: 2013Q4

REPORT INFORMATION
  Report Type: Spontaneous
  Country: US (occurrence: US)
  Receive Date: 20131223
  Receipt Date: 20131223
  Transmission Date: 20140711
  Serious: No
  Sender: FDA-Public Use
  Company Number: US-JNJFOC-20100706193

PATIENT
  Age: 68 Year
  Sex: Female

DRUGS (7)
  1. SIMPONI [Suspect]
     Indication: RHEUMATOID ARTHRITIS
     Route: 058
     Dates: start: 200911
  2. MTX [Concomitant]
     Indication: RHEUMATOID ARTHRITIS
  3. PANTOPRAZOLE [Concomitant]
  4. METOPROLOL SUCCINATE [Concomitant]
  5. EFFEXOR XR [Concomitant]
  6. ASA [Concomitant]
  7. FLONASE [Concomitant]

REACTIONS (3)
  - Cystitis [Recovered/Resolved]
  - Drug dose omission [Not Recovered/Not Resolved]
  - Device malfunction [Unknown]
